FAERS Safety Report 4451107-4 (Version None)
Quarter: 2004Q3

REPORT INFORMATION
  Report Type: 
  Country: None (occurrence: None)
  Receive Date: 20040812
  Receipt Date: 20040428
  Transmission Date: 20050211
  Serious: No
  Sender: FDA-Public Use
  Company Number: USA040465931

PATIENT
  Age: 37 Year
  Sex: Male

DRUGS (4)
  1. CIALIS [Suspect]
     Indication: ERECTILE DYSFUNCTION
     Dosage: 10 MG
  2. BACLOFEN [Concomitant]
  3. ZANAFLEX [Concomitant]
  4. VALIUM [Concomitant]

REACTIONS (1)
  - PRIAPISM [None]
